FAERS Safety Report 9386028 (Version 2)
Quarter: 2013Q3

REPORT INFORMATION
  Report Type: Spontaneous
  Country: IE (occurrence: IE)
  Receive Date: 20130705
  Receipt Date: 20130822
  Transmission Date: 20140515
  Serious: Yes (Other)
  Sender: FDA-Public Use
  Company Number: IE-ABBOTT-13P-229-1115427-00

PATIENT
  Age: 34 Year
  Sex: Male

DRUGS (1)
  1. HUMIRA [Suspect]
     Indication: ANKYLOSING SPONDYLITIS
     Dates: start: 2006, end: 2012

REACTIONS (6)
  - Blindness [Unknown]
  - Multiple sclerosis [Unknown]
  - Demyelination [Unknown]
  - Paraesthesia [Unknown]
  - Hypoaesthesia [Unknown]
  - Optic neuritis [Unknown]
